FAERS Safety Report 11267404 (Version 1)
Quarter: 2015Q3

REPORT INFORMATION
  Report Type: Spontaneous
  Country: US (occurrence: US)
  Receive Date: 20150713
  Receipt Date: 20150713
  Transmission Date: 20151125
  Serious: Yes (Death)
  Sender: FDA-Public Use
  Company Number: US-MYLANLABS-2015M1022308

PATIENT

DRUGS (5)
  1. EPIPEN [Suspect]
     Active Substance: EPINEPHRINE
     Indication: ANAPHYLACTIC REACTION
     Dosage: 0.3 MG, UNK
     Route: 030
     Dates: start: 20150602, end: 20150602
  2. CEFTRIAXONE SANDOZ [Suspect]
     Active Substance: CEFTRIAXONE
     Indication: SINUSITIS
     Dosage: 1 G, ONCE, LEFT BUTTOCK
     Route: 030
     Dates: start: 20150602, end: 20150602
  3. DEPO-MEDROL [Suspect]
     Active Substance: METHYLPREDNISOLONE ACETATE
     Indication: SINUSITIS
     Dosage: 100 MG, ONCE, RIGHT BUTTOCK
     Route: 030
     Dates: start: 20150602, end: 20150602
  4. LIDOCAINE. [Suspect]
     Active Substance: LIDOCAINE
     Indication: SINUSITIS
     Dosage: UNK, DILUTE WITH CEFTRIAXONE, IN LEFT BUTTOCK
     Route: 030
     Dates: start: 20150602, end: 20150602
  5. CYANOCOBALAMIN. [Concomitant]
     Active Substance: CYANOCOBALAMIN
     Indication: FATIGUE

REACTIONS (3)
  - Anaphylactic reaction [Fatal]
  - Blindness [Fatal]
  - Cardiac arrest [Fatal]

NARRATIVE: CASE EVENT DATE: 20150602
